FAERS Safety Report 14997626 (Version 1)
Quarter: 2018Q2

REPORT INFORMATION
  Report Type: Spontaneous
  Country: US (occurrence: US)
  Receive Date: 20180611
  Receipt Date: 20180611
  Transmission Date: 20180711
  Serious: No
  Sender: FDA-Public Use
  Company Number: US-ALLERGAN-1812410US

PATIENT
  Age: 64 Year
  Sex: Female

DRUGS (1)
  1. VIBERZI [Suspect]
     Active Substance: ELUXADOLINE
     Indication: IRRITABLE BOWEL SYNDROME
     Dosage: 75 MG, QHS
     Route: 048

REACTIONS (4)
  - Wrong technique in product usage process [Unknown]
  - Contraindicated drug prescribed [Unknown]
  - Nausea [Unknown]
  - Off label use [Unknown]
